FAERS Safety Report 8834055 (Version 1)
Quarter: 2012Q4

REPORT INFORMATION
  Report Type: Spontaneous
  Country: ES (occurrence: None)
  Receive Date: 20121009
  Receipt Date: 20121009
  Transmission Date: 20130627
  Serious: Yes (Hospitalization, Other)
  Sender: FDA-Public Use
  Company Number: 2012P1060354

PATIENT
  Age: 53 Year
  Sex: Female

DRUGS (6)
  1. FENTANYL PATCH [Suspect]
     Indication: PAIN
     Route: 062
     Dates: start: 20120516, end: 20120523
  2. FENTANYL [Suspect]
     Dosage: 1 patch; 3 days; tder
     Dates: start: 20120524, end: 20120524
  3. IDAPTAN [Concomitant]
  4. EUTIROX [Concomitant]
  5. CYMBALTA [Concomitant]
  6. TOPAMAX [Concomitant]

REACTIONS (3)
  - Depressed level of consciousness [None]
  - Medication error [None]
  - Drug screen positive [None]
